FAERS Safety Report 6710027-2 (Version None)
Quarter: 2010Q2

REPORT INFORMATION
  Report Type: 
  Country: None (occurrence: None)
  Receive Date: 20100503
  Receipt Date: 20100503
  Transmission Date: 20101027
  Serious: No
  Sender: FDA-Public Use
  Company Number: None

PATIENT
  Age: 8 Year
  Sex: Female
  Weight: 29.4838 kg

DRUGS (1)
  1. ZYRTEC [Suspect]

REACTIONS (2)
  - DIARRHOEA [None]
  - VOMITING [None]
